FAERS Safety Report 6450276-4 (Version None)
Quarter: 2009Q4

REPORT INFORMATION
  Report Type: 
  Country: None (occurrence: None)
  Receive Date: 20091123
  Receipt Date: 20091022
  Transmission Date: 20100525
  Serious: No
  Sender: FDA-Public Use
  Company Number: US-BAYER-200937344NA

PATIENT
  Age: 26 Year
  Sex: Female
  Weight: 68 kg

DRUGS (2)
  1. MIRENA [Suspect]
     Indication: CONTRACEPTION
     Dosage: CONTINUOUS
     Route: 015
     Dates: start: 20090701
  2. ZOLOFT [Concomitant]

REACTIONS (5)
  - HOT FLUSH [None]
  - INCREASED APPETITE [None]
  - MOOD SWINGS [None]
  - SUPPRESSED LACTATION [None]
  - VAGINAL HAEMORRHAGE [None]
